FAERS Safety Report 8381271-6 (Version None)
Quarter: 2012Q2

REPORT INFORMATION
  Report Type: 
  Country: None (occurrence: None)
  Receive Date: 20120523
  Receipt Date: 20120514
  Transmission Date: 20120825
  Serious: Yes (Hospitalization)
  Sender: FDA-Public Use
  Company Number: US-MYLANLABS-2012S1010130

PATIENT
  Age: 48 Year
  Sex: Male
  Weight: 94 kg

DRUGS (2)
  1. DIAZEPAM [Suspect]
  2. DIAZEPAM [Suspect]

REACTIONS (5)
  - LOSS OF CONSCIOUSNESS [None]
  - HIP FRACTURE [None]
  - OVERDOSE [None]
  - ROAD TRAFFIC ACCIDENT [None]
  - AMNESIA [None]
